FAERS Safety Report 20958584 (Version 1)
Quarter: 2022Q2

REPORT INFORMATION
  Report Type: Spontaneous
  Country: US (occurrence: US)
  Receive Date: 20220614
  Receipt Date: 20220614
  Transmission Date: 20220720
  Serious: No
  Sender: FDA-Public Use
  Company Number: US-MYLANLABS-2022M1042313

PATIENT
  Sex: Male

DRUGS (4)
  1. WIXELA INHUB [Suspect]
     Active Substance: FLUTICASONE PROPIONATE\SALMETEROL XINAFOATE
     Indication: Emphysema
     Dosage: 250/50 MICROGRAM (TAKING 1-2 DOSES )
     Route: 055
  2. WIXELA INHUB [Suspect]
     Active Substance: FLUTICASONE PROPIONATE\SALMETEROL XINAFOATE
     Indication: Obliterative bronchiolitis
  3. QUINAPRIL [Concomitant]
     Active Substance: QUINAPRIL
     Indication: Emphysema
     Dosage: UNK
  4. QUINAPRIL [Concomitant]
     Active Substance: QUINAPRIL
     Indication: Bronchiolitis

REACTIONS (2)
  - Device issue [Unknown]
  - Off label use [Unknown]
